FAERS Safety Report 4809817-2 (Version None)
Quarter: 2005Q4

REPORT INFORMATION
  Report Type: 
  Country: None (occurrence: None)
  Receive Date: 20051026
  Receipt Date: 20051019
  Transmission Date: 20060501
  Serious: Yes (Death, Life-Threatening)
  Sender: FDA-Public Use
  Company Number: 2005AP05494

PATIENT
  Age: 24428 Day
  Sex: Female
  Weight: 39 kg

DRUGS (14)
  1. IRESSA [Suspect]
     Indication: LUNG ADENOCARCINOMA STAGE IV
     Route: 048
     Dates: start: 20050913, end: 20050921
  2. CARBOPLATIN [Concomitant]
     Dosage: 4 COURSES
     Dates: start: 20030303, end: 20030515
  3. CARBOPLATIN [Concomitant]
     Dosage: 4 COURSES
     Dates: start: 20040212, end: 20040715
  4. PACLITAXEL [Concomitant]
     Dosage: 4 COURSES
     Dates: start: 20030303, end: 20030515
  5. RADIATION THERAPY [Concomitant]
     Dosage: 36 GY TO LEFT THIGH BONE
     Dates: start: 20031209, end: 20031226
  6. RADIATION THERAPY [Concomitant]
     Dosage: 30 GY TO WHOLE BRAIN
     Dates: start: 20050727, end: 20050809
  7. RADIATION THERAPY [Concomitant]
     Dosage: 30 GY TO T-SPINE
     Dates: start: 20050816, end: 20050829
  8. GEMCITABINE [Concomitant]
     Dosage: 4 COURSES
     Dates: start: 20040212, end: 20040715
  9. DOCETAXEL [Concomitant]
     Dosage: 8 COURSES
     Dates: start: 20040818, end: 20050706
  10. DECADRON [Concomitant]
     Indication: BRAIN OEDEMA
     Route: 048
     Dates: start: 20050909, end: 20051007
  11. MYSLEE [Concomitant]
     Route: 048
     Dates: start: 20050909, end: 20051007
  12. MUCOSTA [Concomitant]
     Indication: ABDOMINAL PAIN UPPER
     Route: 048
     Dates: start: 20050909, end: 20051007
  13. ALOSENN [Concomitant]
     Indication: CONSTIPATION
     Route: 048
     Dates: start: 20050909, end: 20051007
  14. MAGNESIUM OXIDE [Concomitant]
     Indication: CONSTIPATION
     Route: 048
     Dates: start: 20050920, end: 20051007

REACTIONS (2)
  - DISSEMINATED INTRAVASCULAR COAGULATION [None]
  - INTERSTITIAL LUNG DISEASE [None]
